FAERS Safety Report 11530719 (Version 1)
Quarter: 2015Q3

REPORT INFORMATION
  Report Type: Spontaneous
  Country: US (occurrence: US)
  Receive Date: 20150921
  Receipt Date: 20150921
  Transmission Date: 20151125
  Serious: No
  Sender: FDA-Public Use
  Company Number: US-GLAXOSMITHKLINE-US2015GSK132289

PATIENT
  Age: 65 Year
  Sex: Male

DRUGS (7)
  1. DRONABINOL CAPSULE [Concomitant]
  2. PROCHLORPERAZINE TABLET [Concomitant]
  3. PROAIR HFA [Concomitant]
     Active Substance: ALBUTEROL SULFATE
  4. VOTRIENT [Suspect]
     Active Substance: PAZOPANIB HYDROCHLORIDE
     Indication: MALIGNANT NEOPLASM OF THORAX
     Dosage: 200 MG, U
     Dates: start: 20150817
  5. DEXAMETHASON TABLET [Concomitant]
  6. OXYCODONE + APAP TABLET [Concomitant]
  7. ONDANSETRON TABLET [Concomitant]
     Active Substance: ONDANSETRON

REACTIONS (2)
  - Dry skin [Not Recovered/Not Resolved]
  - Skin fissures [Not Recovered/Not Resolved]

NARRATIVE: CASE EVENT DATE: 20150908
